APPROVED DRUG PRODUCT: CIDOFOVIR
Active Ingredient: CIDOFOVIR
Strength: EQ 375MG BASE/5ML (EQ 75MG BASE/ML)
Dosage Form/Route: SOLUTION;INTRAVENOUS
Application: A202501 | Product #001 | TE Code: AP
Applicant: AVET LIFESCIENCES LTD
Approved: Jul 26, 2012 | RLD: No | RS: No | Type: RX